FAERS Safety Report 5894976-3 (Version None)
Quarter: 2008Q3

REPORT INFORMATION
  Report Type: 
  Country: None (occurrence: None)
  Receive Date: 20080922
  Receipt Date: 20080904
  Transmission Date: 20090109
  Serious: Yes (Hospitalization)
  Sender: FDA-Public Use
  Company Number: 2008BI023089

PATIENT
  Age: 61 Year
  Sex: Male
  Weight: 99 kg

DRUGS (3)
  1. AVONEX [Suspect]
     Indication: RELAPSING-REMITTING MULTIPLE SCLEROSIS
     Dosage: 30 UG; QW; IM
     Route: 030
     Dates: start: 20060101
  2. DIOVAN HCT [Concomitant]
  3. AMLODIPINE [Suspect]

REACTIONS (3)
  - BACK PAIN [None]
  - DEPRESSED MOOD [None]
  - INTERVERTEBRAL DISC PROTRUSION [None]
